FAERS Safety Report 9205350 (Version 1)
Quarter: 2013Q2

REPORT INFORMATION
  Report Type: Spontaneous
  Country: US (occurrence: US)
  Receive Date: 20130402
  Receipt Date: 20130402
  Transmission Date: 20140414
  Serious: Yes (Other)
  Sender: FDA-Public Use
  Company Number: US-ABBOTT-13P-163-1069013-00

PATIENT
  Sex: 0

DRUGS (4)
  1. ISOFLURANE [Suspect]
     Indication: INDUCTION AND MAINTENANCE OF ANAESTHESIA
     Route: 055
  2. MIDAZOLAM [Concomitant]
     Indication: PREMEDICATION
     Route: 042
  3. SUCCINYLCHOLINE [Concomitant]
     Indication: PRODUCT USED FOR UNKNOWN INDICATION
  4. VECURONIUM [Concomitant]
     Indication: PRODUCT USED FOR UNKNOWN INDICATION

REACTIONS (3)
  - Laryngospasm [Unknown]
  - Cough [Unknown]
  - Hypoxia [Unknown]
